FAERS Safety Report 5601005-5 (Version None)
Quarter: 2008Q1

REPORT INFORMATION
  Report Type: 
  Country: None (occurrence: None)
  Receive Date: 20080124
  Receipt Date: 20080116
  Transmission Date: 20080703
  Serious: Yes (Hospitalization)
  Sender: FDA-Public Use
  Company Number: US-KINGPHARMUSA00001-K200800052

PATIENT

DRUGS (5)
  1. ALTACE [Interacting]
     Indication: ESSENTIAL HYPERTENSION
     Dosage: 2.5 MG, QD
     Route: 048
     Dates: end: 20070928
  2. FELODIPINE [Suspect]
     Indication: ESSENTIAL HYPERTENSION
     Dosage: 2.5 MG, QD
     Route: 048
     Dates: end: 20070928
  3. TEGRETOL [Suspect]
     Indication: PAIN
     Dosage: 600 MG, QD
     Route: 048
     Dates: start: 20070828, end: 20070930
  4. PREDNISOLONE [Suspect]
     Dosage: 40 MG, QD
     Route: 048
     Dates: end: 20070930
  5. TRYPTIZOL /00002202/ [Concomitant]
     Indication: PAIN
     Dosage: 60 MG, UNK
     Route: 048
     Dates: start: 20070828, end: 20070930

REACTIONS (4)
  - BLOOD PRESSURE INCREASED [None]
  - CARDIAC FAILURE CONGESTIVE [None]
  - CHEST PAIN [None]
  - DRUG INTERACTION [None]
